FAERS Safety Report 8140966-X (Version None)
Quarter: 2012Q1

REPORT INFORMATION
  Report Type: 
  Country: None (occurrence: None)
  Receive Date: 20120214
  Receipt Date: 20120214
  Transmission Date: 20120608
  Serious: Yes (Other)
  Sender: FDA-Public Use
  Company Number: None

PATIENT
  Age: 59 Year
  Sex: Male
  Weight: 60.3 kg

DRUGS (1)
  1. DALFAMPRIDINE [Suspect]
     Dosage: 10 MG BID PO
     Route: 048
     Dates: start: 20110521, end: 20110822

REACTIONS (2)
  - DIZZINESS [None]
  - BALANCE DISORDER [None]
